FAERS Safety Report 8875527 (Version 2)
Quarter: 2013Q1

REPORT INFORMATION
  Report Type: Spontaneous
  Country: US (occurrence: US)
  Receive Date: 20121030
  Receipt Date: 20130119
  Transmission Date: 20140127
  Serious: No
  Sender: FDA-Public Use
  Company Number: US-009507513-1210USA009978

PATIENT
  Sex: Female

DRUGS (4)
  1. NASONEX [Suspect]
     Indication: ASTHMA
     Dosage: 50 MICROGRAM, BID
     Route: 045
     Dates: start: 2009
  2. NASONEX [Suspect]
     Dosage: 50 MICROGRAM, BID
     Route: 045
     Dates: start: 2009
  3. PROVENTIL [Concomitant]
  4. LISINOPRIL [Concomitant]

REACTIONS (5)
  - Nasal congestion [Recovering/Resolving]
  - Dyspnoea [Recovering/Resolving]
  - Drug dose omission [Unknown]
  - Accidental exposure to product [Unknown]
  - Product quality issue [Unknown]
